FAERS Safety Report 8842821 (Version 2)
Quarter: 2012Q4

REPORT INFORMATION
  Report Type: Report from Study
  Country: IT (occurrence: IT)
  Receive Date: 20121016
  Receipt Date: 20121128
  Transmission Date: 20130627
  Serious: Yes (Death, Hospitalization)
  Sender: FDA-Public Use
  Company Number: IT-CELGENEUS-083-21880-12101447

PATIENT
  Sex: Male

DRUGS (8)
  1. REVLIMID [Suspect]
     Indication: MULTIPLE MYELOMA
     Dosage: 25 Milligram
     Route: 048
     Dates: start: 20081022, end: 20090216
  2. REVLIMID [Suspect]
     Dosage: 10 Milligram
     Route: 048
     Dates: start: 20090225, end: 20091203
  3. REVLIMID [Suspect]
     Dosage: 5 Milligram
     Route: 048
     Dates: start: 20100120, end: 20120619
  4. DELTACORTENE [Suspect]
     Indication: IMMUNOSUPPRESSANT DRUG THERAPY
     Route: 065
     Dates: start: 20120822
  5. DELTACORTENE [Suspect]
     Indication: MULTIPLE MYELOMA
     Dosage: 25 Milligram
     Route: 048
     Dates: start: 20081022, end: 20090120
  6. PREDNISONE [Concomitant]
     Indication: DRUG USE FOR UNKNOWN INDICATION
     Dosage: 80 Milligram
     Route: 065
     Dates: start: 20120621
  7. PREDNISONE [Concomitant]
     Dosage: 40 Milligram
     Route: 065
     Dates: start: 201207
  8. PREDNISONE [Concomitant]
     Dosage: 20 Milligram
     Route: 065
     Dates: start: 201208

REACTIONS (1)
  - Dermatomyositis [Fatal]
